FAERS Safety Report 10358760 (Version 2)
Quarter: 2014Q4

REPORT INFORMATION
  Report Type: Spontaneous
  Country: IT (occurrence: IT)
  Receive Date: 20140804
  Receipt Date: 20141122
  Transmission Date: 20150528
  Serious: Yes (Hospitalization)
  Sender: FDA-Public Use
  Company Number: IT-ROCHE-1444490

PATIENT
  Age: 56 Year
  Sex: Male

DRUGS (2)
  1. FLURAZEPAM HCL [Suspect]
     Active Substance: FLURAZEPAM HYDROCHLORIDE
     Indication: DRUG ABUSE
     Route: 048
     Dates: start: 20140222, end: 20140222
  2. RIVOTRIL [Suspect]
     Active Substance: CLONAZEPAM
     Indication: DRUG ABUSE
     Route: 048
     Dates: start: 20140222, end: 20140222

REACTIONS (4)
  - Fall [Unknown]
  - Drug abuse [Unknown]
  - Sopor [Recovered/Resolved]
  - Confusional state [Recovered/Resolved]

NARRATIVE: CASE EVENT DATE: 20140222
